FAERS Safety Report 9342311 (Version 1)
Quarter: 2013Q2

REPORT INFORMATION
  Report Type: Spontaneous
  Country: DE (occurrence: DE)
  Receive Date: 20130611
  Receipt Date: 20130611
  Transmission Date: 20140414
  Serious: Yes (Hospitalization, Other)
  Sender: FDA-Public Use
  Company Number: DE-ELI_LILLY_AND_COMPANY-DE201305009748

PATIENT
  Sex: Female

DRUGS (4)
  1. FORSTEO [Suspect]
     Indication: OSTEOPOROSIS
     Dosage: UNK, QD
     Route: 058
     Dates: start: 20120904
  2. CORTISON [Concomitant]
  3. MARCUMAR [Concomitant]
  4. NOVALGIN [Concomitant]

REACTIONS (7)
  - Spleen scan abnormal [Not Recovered/Not Resolved]
  - Myocardial infarction [Unknown]
  - Chest pain [Not Recovered/Not Resolved]
  - Vomiting [Unknown]
  - Nausea [Not Recovered/Not Resolved]
  - Fall [Unknown]
  - Contusion [Unknown]
